FAERS Safety Report 25723587 (Version 2)
Quarter: 2025Q4

REPORT INFORMATION
  Report Type: Spontaneous
  Country: JP (occurrence: JP)
  Receive Date: 20250825
  Receipt Date: 20251124
  Transmission Date: 20260118
  Serious: Yes (Other)
  Sender: BRISTOL-MYERS SQUIBB COMPANY
  Company Number: JP-BRISTOL-MYERS SQUIBB COMPANY-2025-106616

PATIENT
  Age: 75 Year
  Sex: Male

DRUGS (5)
  1. YERVOY [Suspect]
     Active Substance: IPILIMUMAB
     Indication: Malignant melanoma
     Dosage: FROM DECEMBER OF YEAR X-5
     Route: 041
  2. OPDIVO [Suspect]
     Active Substance: NIVOLUMAB
     Indication: Malignant melanoma
     Dosage: FROM DECEMBER OF YEAR X-5
     Route: 041
  3. OPDIVO [Suspect]
     Active Substance: NIVOLUMAB
     Dosage: FROM APRIL IN YEAR X-4, CHANGED TO MONOTHERAPY, A TOTAL OF 58 COURSES OF THE MONOTHERAPY WERE ADMINISTERED
     Route: 041
  4. IMATINIB [Concomitant]
     Active Substance: IMATINIB
     Indication: Malignant melanoma
  5. PEMBROLIZUMAB [Concomitant]
     Active Substance: PEMBROLIZUMAB
     Indication: Malignant melanoma

REACTIONS (2)
  - Diarrhoea [Unknown]
  - Osteomyelitis [Recovering/Resolving]
